FAERS Safety Report 24619776 (Version 1)
Quarter: 2024Q4

REPORT INFORMATION
  Report Type: Spontaneous
  Country: US (occurrence: None)
  Receive Date: 20241114
  Receipt Date: 20241114
  Transmission Date: 20250114
  Serious: Yes (Other)
  Sender: Public
  Company Number: None

PATIENT
  Age: 7 Year
  Sex: Female
  Weight: 22 kg

DRUGS (4)
  1. CEFDINIR [Suspect]
     Active Substance: CEFDINIR
     Indication: Pharyngitis streptococcal
     Dosage: OTHER QUANTITY : 60 ML ORAL SUSPENSION;?FREQUENCY : TWICE A DAY;?
     Route: 048
     Dates: start: 20241028, end: 20241106
  2. GINGER [Concomitant]
     Active Substance: GINGER
  3. black seed oil [Concomitant]
  4. prebiotic/probiotic capsule [Concomitant]

REACTIONS (3)
  - Pain in extremity [None]
  - Headache [None]
  - Nausea [None]

NARRATIVE: CASE EVENT DATE: 20241028
